FAERS Safety Report 9877295 (Version 1)
Quarter: 2014Q1

REPORT INFORMATION
  Report Type: Spontaneous
  Country: SE (occurrence: SE)
  Receive Date: 20140206
  Receipt Date: 20140206
  Transmission Date: 20141002
  Serious: Yes (Hospitalization)
  Sender: FDA-Public Use
  Company Number: SE-JNJFOC-20140202420

PATIENT
  Age: 67 Year
  Sex: Female

DRUGS (9)
  1. XARELTO [Suspect]
     Indication: CEREBROVASCULAR ACCIDENT PROPHYLAXIS
     Route: 048
     Dates: start: 20130827, end: 20130917
  2. XARELTO [Suspect]
     Indication: ATRIAL FIBRILLATION
     Route: 048
     Dates: start: 20130827, end: 20130917
  3. TASIGNA [Interacting]
     Indication: PRODUCT USED FOR UNKNOWN INDICATION
     Route: 065
     Dates: start: 20121031
  4. BETNOVAT [Concomitant]
     Route: 065
     Dates: start: 20121031
  5. ZOLPIDEM [Concomitant]
     Route: 065
     Dates: start: 20121031
  6. CLINDAMYCIN [Concomitant]
     Route: 065
  7. VISCOTEARS [Concomitant]
     Route: 065
     Dates: start: 20111017
  8. METOPROLOL [Concomitant]
     Route: 065
  9. CETIRIZINE [Concomitant]
     Route: 065
     Dates: start: 20121031

REACTIONS (2)
  - Drug interaction [Recovered/Resolved]
  - Haemorrhage subcutaneous [Recovered/Resolved]
